FAERS Safety Report 8087147-6 (Version None)
Quarter: 2012Q1

REPORT INFORMATION
  Report Type: 
  Country: None (occurrence: None)
  Receive Date: 20120128
  Receipt Date: 20110413
  Transmission Date: 20120608
  Serious: No
  Sender: FDA-Public Use
  Company Number: US-ABBOTT-11P-163-0719315-00

PATIENT
  Sex: Female
  Weight: 81.72 kg

DRUGS (10)
  1. GLUCOSAMIN CHONDROITIN [Concomitant]
     Indication: SUPPLEMENTATION THERAPY
     Route: 048
  2. HUMIRA [Suspect]
     Indication: CROHN'S DISEASE
     Dosage: 1ST LOADING DOSE, ONCE
     Route: 058
     Dates: start: 20110328, end: 20110328
  3. CELEBREX [Concomitant]
     Indication: ARTHRITIS
     Route: 048
  4. IMODIUM [Concomitant]
     Indication: PRODUCT USED FOR UNKNOWN INDICATION
     Route: 048
  5. MERCAPTOPURINE [Concomitant]
     Indication: CROHN'S DISEASE
  6. MULTI-VITAMIN [Concomitant]
     Indication: SUPPLEMENTATION THERAPY
     Route: 048
  7. TANDEM [Concomitant]
     Indication: MINERAL SUPPLEMENTATION
     Route: 048
  8. HUMIRA [Suspect]
     Route: 058
     Dates: start: 20110411, end: 20110411
  9. CALCIUM WITH VITAMIN D [Concomitant]
     Indication: SUPPLEMENTATION THERAPY
     Route: 048
  10. ASPIRIN [Concomitant]
     Indication: PRODUCT USED FOR UNKNOWN INDICATION
     Route: 048

REACTIONS (1)
  - FATIGUE [None]
